FAERS Safety Report 9924311 (Version 1)
Quarter: 2014Q1

REPORT INFORMATION
  Report Type: Report from Study
  Country: GR (occurrence: GR)
  Receive Date: 20140226
  Receipt Date: 20140226
  Transmission Date: 20141002
  Serious: Yes (Hospitalization)
  Sender: FDA-Public Use
  Company Number: GR-MERCK-1402GRC011608

PATIENT
  Sex: Male

DRUGS (1)
  1. AERIUS [Suspect]
     Indication: RHINITIS ALLERGIC
     Route: 048

REACTIONS (2)
  - Sedation [Unknown]
  - Dry mouth [Unknown]
